FAERS Safety Report 5494296-5 (Version None)
Quarter: 2007Q4

REPORT INFORMATION
  Report Type: 
  Country: None (occurrence: None)
  Receive Date: 20071015
  Receipt Date: 20070807
  Transmission Date: 20080405
  Serious: No
  Sender: FDA-Public Use
  Company Number: 2007SP002769

PATIENT
  Age: 54 Year
  Sex: Female

DRUGS (11)
  1. LUNESTA [Suspect]
     Dosage: 3 MG;ORAL
     Route: 048
     Dates: start: 20070701
  2. LASIX [Concomitant]
  3. POTASSIUM CHLORIDE [Concomitant]
  4. GABAPENTIN [Concomitant]
  5. SINGULAIR [Concomitant]
  6. ALBUTEROL [Concomitant]
  7. PRAMIPEXOLE DIHYDROCHLORIDE [Concomitant]
  8. CYMBALTA [Concomitant]
  9. ULTRAM [Concomitant]
  10. ATIVAN [Concomitant]
  11. NASONEX [Concomitant]

REACTIONS (1)
  - DYSGEUSIA [None]
